FAERS Safety Report 23235229 (Version 1)
Quarter: 2023Q4

REPORT INFORMATION
  Report Type: Spontaneous
  Country: CA (occurrence: CA)
  Receive Date: 20231128
  Receipt Date: 20231128
  Transmission Date: 20240110
  Serious: Yes (Other)
  Sender: FDA-Public Use
  Company Number: CA-PFIZER INC-202300393003

PATIENT
  Age: 68 Year
  Sex: Female

DRUGS (15)
  1. SOMAVERT [Suspect]
     Active Substance: PEGVISOMANT
     Indication: Acromegaly
     Dosage: 5XWEEK, DISCONTINUED
     Route: 058
     Dates: start: 20140731
  2. SOMAVERT [Suspect]
     Active Substance: PEGVISOMANT
     Dosage: 10 MG
     Route: 058
  3. SOMAVERT [Suspect]
     Active Substance: PEGVISOMANT
     Dosage: 5XWEEK
     Route: 058
     Dates: end: 2018
  4. SOMAVERT [Suspect]
     Active Substance: PEGVISOMANT
     Dosage: 4XWEEK
     Route: 058
     Dates: start: 2019
  5. ANASTROZOLE [Concomitant]
     Active Substance: ANASTROZOLE
     Dosage: 1 MG FREQUENCY UNKNOWN
     Route: 065
  6. ASPIRIN [Concomitant]
     Active Substance: ASPIRIN
     Dosage: 80 MG
  7. DEXILANT [Concomitant]
     Active Substance: DEXLANSOPRAZOLE
     Dosage: 60 MG, AS NEEDED
     Route: 065
  8. DOSTINEX [Concomitant]
     Active Substance: CABERGOLINE
     Dosage: 1 DF (0.4MG X 4 PILLS A DAY, TWICE A WEEK)
     Route: 065
  9. GLYBURIDE [Concomitant]
     Active Substance: GLYBURIDE
     Dosage: 2.5 MG, 2X/DAY
     Route: 065
     Dates: start: 201911
  10. LYRICA [Concomitant]
     Active Substance: PREGABALIN
     Dosage: 75 MG, AS NEEDED
     Route: 065
  11. CHOLECALCIFEROL\FISH OIL [Concomitant]
     Active Substance: CHOLECALCIFEROL\FISH OIL
     Dosage: UNK
  12. PROBIOTICS NOS [Concomitant]
     Active Substance: PROBIOTICS NOS
     Dosage: UNK
  13. ROSUVASTATIN [Concomitant]
     Active Substance: ROSUVASTATIN
     Dosage: 20 MG
  14. SYNTHROID [Concomitant]
     Active Substance: LEVOTHYROXINE SODIUM
     Dosage: 1 DF (0.5MG AND 0.75MG ALTERNATING DAYS)
     Route: 065
  15. ICOSAPENT [Concomitant]
     Active Substance: ICOSAPENT
     Dosage: UNK

REACTIONS (6)
  - Angina pectoris [Recovered/Resolved]
  - Pharyngitis streptococcal [Recovered/Resolved]
  - COVID-19 [Unknown]
  - Dyspnoea [Not Recovered/Not Resolved]
  - Atrioventricular block [Unknown]
  - Hypertension [Unknown]

NARRATIVE: CASE EVENT DATE: 20230101
